FAERS Safety Report 20233183 (Version 1)
Quarter: 2021Q4

REPORT INFORMATION
  Report Type: Spontaneous
  Country: DE (occurrence: DE)
  Receive Date: 20211227
  Receipt Date: 20211227
  Transmission Date: 20220303
  Serious: Yes (Hospitalization)
  Sender: FDA-Public Use
  Company Number: DE-ADRED-06590-05

PATIENT
  Age: 64 Year
  Sex: Male

DRUGS (10)
  1. GEMCITABINE [Suspect]
     Active Substance: GEMCITABINE
     Dosage: 2400 MG, ACCORDING TO THE SCHEME,
     Route: 042
  2. LIPEGFILGRASTIM [Suspect]
     Active Substance: LIPEGFILGRASTIM
     Dosage: ACCORDING TO THE SCHEME
  3. CARBOPLATIN [Suspect]
     Active Substance: CARBOPLATIN
     Dosage: ACCORDING TO THE SCHEME
     Route: 042
  4. AMDINOCILLIN PIVOXIL [Concomitant]
     Active Substance: AMDINOCILLIN PIVOXIL
     Dosage: 600 MILLIGRAM DAILY; 1-1-1-0
     Route: 048
  5. ASPIRIN [Concomitant]
     Active Substance: ASPIRIN
     Dosage: 100 MILLIGRAM DAILY; 1-0-0-0,  ACETYLSALICYLSAURE
     Route: 048
  6. Macrogol / Potassium Chloride / Sodium Carbonate / Sodium Chloride [Concomitant]
     Dosage: 3 DOSAGE FORMS DAILY; 13.125 | 0.047 | 0.179 | 0.351 G, 1-1-1-0, POWDER TO MAKE A SOLUTION , MACROGO
     Route: 048
  7. INSULIN LISPRO [Concomitant]
     Active Substance: INSULIN LISPRO
     Dosage: 1 IU, ACCORDING TO BZ,
     Route: 058
  8. PANTOPRAZOLE SODIUM [Concomitant]
     Active Substance: PANTOPRAZOLE SODIUM
     Dosage: 40 MILLIGRAM DAILY; 1-0-0-0
     Route: 048
  9. DALTEPARIN [Concomitant]
     Active Substance: DALTEPARIN
     Dosage: 5000 IU (INTERNATIONAL UNIT) DAILY; PRE-FILLED SYRINGES
     Route: 058
  10. CALCITRIOL [Concomitant]
     Active Substance: CALCITRIOL
     Dosage: 2 DOSAGE FORMS DAILY; 0.25 UG, 2-0-0-0
     Route: 048

REACTIONS (9)
  - Muscular weakness [Unknown]
  - Chills [Unknown]
  - Headache [Unknown]
  - Decreased appetite [Unknown]
  - Abdominal pain [Unknown]
  - Diarrhoea [Unknown]
  - Vomiting [Unknown]
  - General physical health deterioration [Unknown]
  - Dizziness [Unknown]
